FAERS Safety Report 6639570-1 (Version None)
Quarter: 2010Q1

REPORT INFORMATION
  Report Type: 
  Country: None (occurrence: None)
  Receive Date: 20100318
  Receipt Date: 20100305
  Transmission Date: 20100710
  Serious: No
  Sender: FDA-Public Use
  Company Number: US-B.I. PHARMACEUTICALS,INC./RIDGEFIELD-2010-BP-01364BP

PATIENT
  Sex: Female

DRUGS (14)
  1. SPIRIVA [Suspect]
     Indication: CHRONIC OBSTRUCTIVE PULMONARY DISEASE
     Dosage: 18 MCG
     Route: 055
     Dates: start: 20050101
  2. ADVAIR DISKUS 100/50 [Concomitant]
     Indication: CHRONIC OBSTRUCTIVE PULMONARY DISEASE
  3. LIPITOR [Concomitant]
     Indication: BLOOD CHOLESTEROL INCREASED
  4. NORVASC [Concomitant]
     Indication: HYPERTENSION
  5. PLAVIX [Concomitant]
     Indication: PROPHYLAXIS
  6. SPIRONOLACTONE [Concomitant]
     Indication: DIURETIC THERAPY
  7. TOPROL-XL [Concomitant]
     Indication: HYPERTENSION
  8. PRILOSEC [Concomitant]
     Indication: GASTROOESOPHAGEAL REFLUX DISEASE
  9. RANITIDINE HCL [Concomitant]
     Indication: GASTROOESOPHAGEAL REFLUX DISEASE
  10. TORSEMIDE [Concomitant]
     Indication: DIURETIC THERAPY
  11. POTASSIUM [Concomitant]
     Indication: SUPPLEMENTATION THERAPY
  12. COZAAR [Concomitant]
     Indication: HYPERTENSION
  13. MUCINEX [Concomitant]
  14. ASPIRIN [Concomitant]
     Indication: PROPHYLAXIS
     Dosage: 81 MG

REACTIONS (1)
  - COUGH [None]
